FAERS Safety Report 6717382-8 (Version None)
Quarter: 2010Q2

REPORT INFORMATION
  Report Type: 
  Country: None (occurrence: None)
  Receive Date: 20100510
  Receipt Date: 20100429
  Transmission Date: 20101027
  Serious: Yes (Other)
  Sender: FDA-Public Use
  Company Number: US-AMGEN-QUU405580

PATIENT
  Sex: Female

DRUGS (2)
  1. ENBREL [Suspect]
     Indication: PSORIATIC ARTHROPATHY
     Route: 058
     Dates: start: 20061108
  2. ENBREL [Suspect]
     Indication: PSORIASIS

REACTIONS (8)
  - BACK PAIN [None]
  - CYSTITIS [None]
  - DRUG HYPERSENSITIVITY [None]
  - ENTEROCOCCAL INFECTION [None]
  - NECK PAIN [None]
  - ROAD TRAFFIC ACCIDENT [None]
  - SPINAL CORD INJURY [None]
  - SPONDYLOLISTHESIS [None]
